FAERS Safety Report 12244602 (Version 1)
Quarter: 2016Q2

REPORT INFORMATION
  Report Type: Report from Study
  Country: JP (occurrence: JP)
  Receive Date: 20160407
  Receipt Date: 20160407
  Transmission Date: 20160815
  Serious: Yes (Death)
  Sender: FDA-Public Use
  Company Number: JP-ACCORD-039389

PATIENT

DRUGS (6)
  1. ETOPOSIDE. [Suspect]
     Active Substance: ETOPOSIDE
     Indication: DIFFUSE LARGE B-CELL LYMPHOMA
     Dosage: 80 MG/M2 OVER 2 H DAILY FOR 3 D (FROM DAY 3 TO DAY 5)
  2. METHYLPREDNISOLONE. [Suspect]
     Active Substance: METHYLPREDNISOLONE
     Indication: DIFFUSE LARGE B-CELL LYMPHOMA
     Dosage: 1000MG PER BODY OVER 30 MIN DAILY FOR 3 DAYS (FROM DAY 3 TO DAY 5),
  3. RITUXIMAB [Suspect]
     Active Substance: RITUXIMAB
     Indication: DIFFUSE LARGE B-CELL LYMPHOMA
     Dosage: OVER 4 H ON DAY 1
  4. METHOTREXATE [Suspect]
     Active Substance: METHOTREXATE
     Indication: DIFFUSE LARGE B-CELL LYMPHOMA
     Dosage: 30 MG/M2 OVER 30 MIN ON DAY 5 AND DAY 12
  5. CARBOPLATIN. [Suspect]
     Active Substance: CARBOPLATIN
     Indication: DIFFUSE LARGE B-CELL LYMPHOMA
     Dosage: 300 MG/M2 ON DAY 1 OVER 1 H
  6. IFOSFAMIDE. [Suspect]
     Active Substance: IFOSFAMIDE
     Indication: DIFFUSE LARGE B-CELL LYMPHOMA
     Dosage: 1000 MG/M2 OVER 2 H DAILY FOR 5 DAYS (FROM DAY 3 TO DAY 7),

REACTIONS (1)
  - Sepsis [Fatal]
